APPROVED DRUG PRODUCT: CHILDREN'S ZYRTEC HIVES
Active Ingredient: CETIRIZINE HYDROCHLORIDE
Strength: 5MG/5ML
Dosage Form/Route: SOLUTION;ORAL
Application: N022155 | Product #001
Applicant: KENVUE BRANDS LLC
Approved: Nov 16, 2007 | RLD: Yes | RS: Yes | Type: OTC